FAERS Safety Report 10045246 (Version 2)
Quarter: 2014Q3

REPORT INFORMATION
  Report Type: Spontaneous
  Country: BR (occurrence: BR)
  Receive Date: 20140328
  Receipt Date: 20140717
  Transmission Date: 20150326
  Serious: Yes (Other)
  Sender: FDA-Public Use
  Company Number: BR-ABBVIE-14P-020-1218346-00

PATIENT
  Age: 4 Year
  Sex: Female
  Weight: 19.5 kg

DRUGS (5)
  1. DEPAKENE [Suspect]
     Active Substance: VALPROIC ACID
     Dosage: 5ML IN MORNING (KEPT ON INGESTING 3ML OR INCREASED TO 5 ML AT NIGHT, NOT CLARIFIED)
     Dates: end: 20140630
  2. SODIUM VALPROATE [Concomitant]
     Active Substance: VALPROATE SODIUM
     Indication: PRODUCT USED FOR UNKNOWN INDICATION
  3. ALL OTHER THERAPEUTIC PRODUCTS [Concomitant]
     Active Substance: UNSPECIFIED INGREDIENT
     Indication: PRODUCT USED FOR UNKNOWN INDICATION
  4. DEPAKENE [Suspect]
     Active Substance: VALPROIC ACID
     Indication: PRODUCT USED FOR UNKNOWN INDICATION
     Dosage: 5ML IN THE MORNING AND 7.5ML AT NIGHT: DAILY DOSE: 12.5 ML
     Dates: start: 20140701
  5. DEPAKENE [Suspect]
     Active Substance: VALPROIC ACID
     Dosage: IN THE MORNING AND AT NIGHT: DAILY DOSE: 6 ML

REACTIONS (3)
  - Incorrect product storage [Unknown]
  - Convulsion [Unknown]
  - Chills [Not Recovered/Not Resolved]

NARRATIVE: CASE EVENT DATE: 20140706
